FAERS Safety Report 9416781 (Version 1)
Quarter: 2013Q3

REPORT INFORMATION
  Report Type: Spontaneous
  Country: US (occurrence: US)
  Receive Date: 20130724
  Receipt Date: 20130724
  Transmission Date: 20140515
  Serious: No
  Sender: FDA-Public Use
  Company Number: US-GALDERMA-US13000303

PATIENT
  Age: 38 Year
  Sex: Female
  Weight: 73 kg

DRUGS (2)
  1. ORACEA (DOXYCYCLINE, USP) CAPSULES 40 MG [Suspect]
     Indication: ROSACEA
     Route: 048
     Dates: start: 201209
  2. ORACEA (DOXYCYCLINE, USP) CAPSULES 40 MG [Suspect]
     Indication: DERMATITIS

REACTIONS (6)
  - Lacrimal disorder [Not Recovered/Not Resolved]
  - Vulvovaginal dryness [Not Recovered/Not Resolved]
  - Libido decreased [Not Recovered/Not Resolved]
  - Therapeutic response unexpected [Not Recovered/Not Resolved]
  - Mucosal dryness [Not Recovered/Not Resolved]
  - Nasal mucosa atrophy [Not Recovered/Not Resolved]
